FAERS Safety Report 24585416 (Version 1)
Quarter: 2024Q4

REPORT INFORMATION
  Report Type: Spontaneous
  Country: US (occurrence: None)
  Receive Date: 20241106
  Receipt Date: 20241106
  Transmission Date: 20250115
  Serious: No
  Sender: Public
  Company Number: None

PATIENT
  Age: 77 Year
  Sex: Male
  Weight: 47.17 kg

DRUGS (11)
  1. OCREVUS [Suspect]
     Active Substance: OCRELIZUMAB
     Indication: Multiple sclerosis
     Dosage: OTHER FREQUENCY : Q6MONTHS;?
     Route: 042
     Dates: start: 20240522
  2. ALBUTEROL SULFATE [Concomitant]
     Active Substance: ALBUTEROL SULFATE
  3. BACLOFEN [Concomitant]
     Active Substance: BACLOFEN
  4. FINASTERIDE 5 [Concomitant]
  5. FUROSEMIDE 20 [Concomitant]
  6. GABAPENTIN 100 [Concomitant]
  7. LOSARTAN [Concomitant]
  8. METFORMIN 1G [Concomitant]
  9. METOPROLOL ER 100 [Concomitant]
  10. SINGULAIR 10 [Concomitant]
  11. WIXELA 100 [Concomitant]

REACTIONS (1)
  - Death [None]

NARRATIVE: CASE EVENT DATE: 20241106
